FAERS Safety Report 17818789 (Version 1)
Quarter: 2020Q2

REPORT INFORMATION
  Report Type: Spontaneous
  Country: CO (occurrence: CO)
  Receive Date: 20200522
  Receipt Date: 20200522
  Transmission Date: 20200714
  Serious: Yes (Other)
  Sender: FDA-Public Use
  Company Number: CO-009507513-2004COL006999

PATIENT
  Age: 72 Year
  Sex: Male

DRUGS (1)
  1. TEMODAL [Suspect]
     Active Substance: TEMOZOLOMIDE
     Indication: NON-HODGKIN^S LYMPHOMA
     Dosage: 250 MILLIGRAM
     Route: 048

REACTIONS (9)
  - General physical health deterioration [Unknown]
  - Product outer packaging issue [Unknown]
  - Amnesia [Unknown]
  - Decreased appetite [Unknown]
  - Product prescribing issue [Unknown]
  - Non-Hodgkin^s lymphoma [Unknown]
  - Abnormal behaviour [Unknown]
  - Product storage error [Unknown]
  - Product use in unapproved indication [Unknown]

NARRATIVE: CASE EVENT DATE: 2020
